FAERS Safety Report 9818344 (Version 1)
Quarter: 2014Q1

REPORT INFORMATION
  Report Type: Spontaneous
  Country: US (occurrence: US)
  Receive Date: 20140115
  Receipt Date: 20140115
  Transmission Date: 20141002
  Serious: No
  Sender: FDA-Public Use
  Company Number: US-PFIZER INC-2014008974

PATIENT
  Age: 73 Year
  Sex: Male
  Weight: 99.77 kg

DRUGS (1)
  1. ADVIL [Suspect]
     Indication: ARTHRALGIA
     Dosage: UNK (JUST TWO DOSES WITHIN 2 HOURS)
     Route: 048
     Dates: start: 20140108, end: 20140109

REACTIONS (3)
  - Inappropriate schedule of drug administration [Unknown]
  - Drug ineffective [Unknown]
  - Insomnia [Unknown]
